FAERS Safety Report 9852307 (Version 2)
Quarter: 2014Q1

REPORT INFORMATION
  Report Type: Spontaneous
  Country: BR (occurrence: BR)
  Receive Date: 20140129
  Receipt Date: 20140207
  Transmission Date: 20141002
  Serious: Yes (Hospitalization)
  Sender: FDA-Public Use
  Company Number: BR-NOVOPROD-398829

PATIENT
  Age: 84 Year
  Sex: Female
  Weight: 69 kg

DRUGS (1)
  1. LEVEMIR PENFILL [Suspect]
     Indication: TYPE 2 DIABETES MELLITUS
     Dosage: UNK (35 IU (25 U IN THE MORNING AND 10 U AT NIGHT)
     Route: 058

REACTIONS (2)
  - Influenza [Recovered/Resolved]
  - Dyspnoea [Recovered/Resolved]
